FAERS Safety Report 5208380-4 (Version None)
Quarter: 2007Q1

REPORT INFORMATION
  Report Type: 
  Country: None (occurrence: None)
  Receive Date: 20070115
  Receipt Date: 20070102
  Transmission Date: 20070707
  Serious: No
  Sender: FDA-Public Use
  Company Number: US-ELI_LILLY_AND_COMPANY-US200701000772

PATIENT
  Sex: Female

DRUGS (2)
  1. CYMBALTA [Suspect]
     Dosage: 60 MG, UNK
     Dates: start: 20060101
  2. PROVOCHOLINE [Concomitant]
     Indication: BLOOD CHOLESTEROL
     Dates: end: 20061201

REACTIONS (2)
  - HEPATIC ENZYME INCREASED [None]
  - MYALGIA [None]
